FAERS Safety Report 8424796-7 (Version None)
Quarter: 2012Q2

REPORT INFORMATION
  Report Type: 
  Country: None (occurrence: None)
  Receive Date: 20120611
  Receipt Date: 20120605
  Transmission Date: 20120825
  Serious: No
  Sender: FDA-Public Use
  Company Number: US-BIOGENIDEC-2012BI019992

PATIENT
  Sex: Female

DRUGS (1)
  1. TYSABRI [Suspect]
     Indication: MULTIPLE SCLEROSIS
     Route: 042
     Dates: start: 20111007, end: 20111104

REACTIONS (5)
  - MUSCLE SPASTICITY [None]
  - ASTHENIA [None]
  - ENERGY INCREASED [None]
  - FATIGUE [None]
  - PAIN [None]
